FAERS Safety Report 7498527-1 (Version None)
Quarter: 2011Q2

REPORT INFORMATION
  Report Type: 
  Country: None (occurrence: None)
  Receive Date: 20110524
  Receipt Date: 20081001
  Transmission Date: 20111010
  Serious: Yes (Death, Hospitalization, Other)
  Sender: FDA-Public Use
  Company Number: US-BAYER-201038688NA

PATIENT
  Age: 64 Year
  Sex: Female
  Weight: 75 kg

DRUGS (17)
  1. KEFLEX [Concomitant]
     Dosage: UNK
     Route: 048
     Dates: start: 20030101
  2. LOPRESSOR [Concomitant]
     Dosage: 25 MG, BID
     Route: 048
     Dates: start: 20030101, end: 20080101
  3. HEPARIN [Concomitant]
     Dosage: BYPASS
     Dates: start: 20040913
  4. LASIX [Concomitant]
     Dosage: 40 MG, QD
     Route: 048
     Dates: start: 20020101, end: 20080101
  5. RED BLOOD CELLS [Concomitant]
     Dosage: 2 U, ONCE
     Route: 042
     Dates: start: 20040913
  6. ZOCOR [Concomitant]
     Dosage: UNK
     Route: 048
     Dates: start: 20020101, end: 20080101
  7. ANCEF [Concomitant]
     Dosage: 2 G, UNK
     Route: 042
     Dates: start: 20040913, end: 20040916
  8. CARDIOPLEGIA [Concomitant]
     Dosage: UNK
     Dates: start: 20040913, end: 20040913
  9. ALBUMIN (HUMAN) [Concomitant]
     Dosage: 25 MG, UNK
     Dates: start: 20040913, end: 20040913
  10. MANNITOL [Concomitant]
     Dosage: 25 G, UNK
     Dates: start: 20040913, end: 20040913
  11. TRASYLOL [Suspect]
     Indication: CORONARY ARTERY BYPASS
  12. TRASYLOL [Suspect]
     Indication: HIGH FREQUENCY ABLATION
  13. TRASYLOL [Suspect]
     Indication: SURGERY
     Dosage: 200 ML, ONCE, CARDIOPULMONARY BYPASS PRIME
     Route: 042
     Dates: start: 20040913, end: 20040913
  14. DIOVAN [Concomitant]
     Dosage: UNK
     Route: 048
     Dates: start: 20020101, end: 20080101
  15. COZAAR [Concomitant]
     Dosage: 25 MG, BID
     Route: 048
     Dates: start: 20020101, end: 20080101
  16. INSULIN [Concomitant]
     Dosage: TITRATED IV DRIP
     Route: 042
     Dates: start: 20040913
  17. PROTAMINE SULFATE [Concomitant]
     Dosage: 500 MG, UNK
     Dates: start: 20040913, end: 20040913

REACTIONS (5)
  - RENAL FAILURE [None]
  - PAIN [None]
  - EMOTIONAL DISTRESS [None]
  - INJURY [None]
  - ANXIETY [None]
